FAERS Safety Report 13273622 (Version 3)
Quarter: 2017Q1

REPORT INFORMATION
  Report Type: Spontaneous
  Country: US (occurrence: US)
  Receive Date: 20170227
  Receipt Date: 20170306
  Transmission Date: 20170428
  Serious: Yes (Other)
  Sender: FDA-Public Use
  Company Number: US-TORRENT-00002571

PATIENT
  Age: 81 Year
  Sex: Female
  Weight: 62 kg

DRUGS (3)
  1. SYNTHROID [Concomitant]
     Active Substance: LEVOTHYROXINE SODIUM
  2. FELODIPINE. [Suspect]
     Active Substance: FELODIPINE
  3. ACIPHEX [Concomitant]
     Active Substance: RABEPRAZOLE SODIUM

REACTIONS (9)
  - Chest discomfort [Recovered/Resolved]
  - Product size issue [Recovered/Resolved]
  - Retching [Recovered/Resolved]
  - Fear [Recovered/Resolved]
  - Product quality issue [Recovered/Resolved]
  - Throat tightness [Recovered/Resolved]
  - Choking [Recovered/Resolved]
  - Feeling abnormal [Recovered/Resolved]
  - Dysgeusia [Recovered/Resolved]

NARRATIVE: CASE EVENT DATE: 20170213
